FAERS Safety Report 4607855-6 (Version None)
Quarter: 2005Q1

REPORT INFORMATION
  Report Type: 
  Country: None (occurrence: None)
  Receive Date: 20050310
  Receipt Date: 20041223
  Transmission Date: 20050727
  Serious: Yes (Hospitalization, Other)
  Sender: FDA-Public Use
  Company Number: ENTC2004-0248

PATIENT
  Sex: 0

DRUGS (9)
  1. STALEVO 100 [Suspect]
     Dosage: 100/25/200 ORAL
     Route: 048
  2. CITALOPRAM HYDROBROMIDE [Suspect]
     Indication: DEPRESSION
     Dosage: 20 MG; 10 MG
     Dates: start: 20031009, end: 20040328
  3. CITALOPRAM HYDROBROMIDE [Suspect]
     Indication: DEPRESSION
     Dosage: 20 MG; 10 MG
     Dates: start: 20040309, end: 20040719
  4. BETASERC [Concomitant]
  5. THROMBO ASS [Concomitant]
  6. DETRUSITOL [Concomitant]
  7. SPIRONO COMP [Concomitant]
  8. MADOPAR [Concomitant]
  9. COMTESS (ENTACAPONE) [Concomitant]

REACTIONS (8)
  - AGITATION [None]
  - BALANCE DISORDER [None]
  - CONDITION AGGRAVATED [None]
  - CONFUSIONAL STATE [None]
  - DYSKINESIA [None]
  - FALL [None]
  - OVERDOSE [None]
  - TREATMENT NONCOMPLIANCE [None]
